FAERS Safety Report 20992563 (Version 1)
Quarter: 2022Q2

REPORT INFORMATION
  Report Type: Spontaneous
  Country: US (occurrence: None)
  Receive Date: 20220621
  Receipt Date: 20220621
  Transmission Date: 20220721
  Serious: Yes (Hospitalization)
  Sender: FDA-Public Use
  Company Number: None

PATIENT
  Age: 77 Year
  Sex: Female

DRUGS (22)
  1. OPSUMIT [Suspect]
     Active Substance: MACITENTAN
     Indication: Pulmonary hypertension
     Dosage: FREQUENCY : DAILY;?
     Route: 048
     Dates: start: 20200617
  2. SILDENAFIL [Concomitant]
     Active Substance: SILDENAFIL
  3. LISINOPRIL [Concomitant]
     Active Substance: LISINOPRIL
  4. ATORVASTATIN [Concomitant]
  5. TORSEMIDE [Concomitant]
  6. LEVOTHYROXINE [Concomitant]
  7. FLUOXETINE [Concomitant]
  8. SPIRIVA RESPIMAT [Concomitant]
  9. POTASSIUM CHLORIDE [Concomitant]
  10. ALBUTEROL INHL NEB SOLN [Concomitant]
  11. ALBUTEROL INHL HFA [Concomitant]
  12. FLONASE [Concomitant]
  13. ASTELIN [Concomitant]
  14. OMEPRAZOLE [Concomitant]
  15. WIXELA INHUB [Concomitant]
  16. MONTELUKAST [Concomitant]
  17. BIOTIN [Concomitant]
  18. LACTINEX [Concomitant]
  19. MVI-Minerals [Concomitant]
  20. OXYGEN INTRANASAL [Concomitant]
  21. CALCIUM CARBONATE [Concomitant]
  22. VITAMIN D3 [Concomitant]

REACTIONS (4)
  - Rash pruritic [None]
  - Dermatitis contact [None]
  - Acute respiratory failure [None]
  - Erythema [None]

NARRATIVE: CASE EVENT DATE: 20220517
